FAERS Safety Report 5530695-0 (Version None)
Quarter: 2007Q4

REPORT INFORMATION
  Report Type: 
  Country: None (occurrence: None)
  Receive Date: 20071128
  Receipt Date: 20071128
  Transmission Date: 20080405
  Serious: Yes (Life-Threatening)
  Sender: FDA-Public Use
  Company Number: None

PATIENT
  Sex: Male
  Weight: 65.7 kg

DRUGS (9)
  1. SIMVASTATIN [Suspect]
     Indication: LIPIDS INCREASED
     Dosage: 80 MG PO QD
     Route: 048
     Dates: start: 20071005, end: 20071012
  2. EZETIMIBE [Suspect]
     Dosage: 10 MG PO QD
     Route: 048
     Dates: start: 20071005, end: 20071012
  3. AMIODARONE HCL [Concomitant]
  4. HEPARIN [Concomitant]
  5. LANSOPRAZOLE [Concomitant]
  6. INSULIN [Concomitant]
  7. ENALAPRIL [Concomitant]
  8. CARVEDILOL [Concomitant]
  9. FUROSEMIDE [Concomitant]

REACTIONS (7)
  - ATRIAL FIBRILLATION [None]
  - BACK PAIN [None]
  - BLOOD CREATINE PHOSPHOKINASE INCREASED [None]
  - BLOOD CREATININE INCREASED [None]
  - CONTINUOUS HAEMODIAFILTRATION [None]
  - MUSCULAR WEAKNESS [None]
  - TREATMENT NONCOMPLIANCE [None]
